FAERS Safety Report 9142397 (Version 1)
Quarter: 2013Q1

REPORT INFORMATION
  Report Type: Spontaneous
  Country: US (occurrence: US)
  Receive Date: 20130306
  Receipt Date: 20130306
  Transmission Date: 20140127
  Serious: No
  Sender: FDA-Public Use
  Company Number: US-BIOGENIDEC-2008BI010458

PATIENT
  Age: 44 None
  Sex: Female

DRUGS (3)
  1. TYSABRI [Suspect]
     Indication: MULTIPLE SCLEROSIS
     Route: 042
     Dates: start: 20080416, end: 20090513
  2. TYSABRI [Suspect]
     Indication: MULTIPLE SCLEROSIS
     Route: 042
     Dates: start: 20090930, end: 20100202
  3. TYSABRI [Suspect]
     Indication: MULTIPLE SCLEROSIS
     Route: 042
     Dates: start: 20120511

REACTIONS (24)
  - Vertigo [Recovered/Resolved]
  - Diarrhoea [Recovered/Resolved]
  - Muscle spasms [Not Recovered/Not Resolved]
  - Pain [Recovered/Resolved]
  - Hallucination [Recovered/Resolved]
  - Dysarthria [Recovered/Resolved]
  - Poor venous access [Not Recovered/Not Resolved]
  - Weight decreased [Recovered/Resolved]
  - Weight increased [Not Recovered/Not Resolved]
  - Local swelling [Recovered/Resolved]
  - Night sweats [Recovered/Resolved]
  - Sunburn [Not Recovered/Not Resolved]
  - Weight fluctuation [Not Recovered/Not Resolved]
  - Musculoskeletal pain [Unknown]
  - Paraesthesia [Recovered/Resolved]
  - Headache [Recovered/Resolved]
  - Fatigue [Not Recovered/Not Resolved]
  - Vomiting [Recovered/Resolved]
  - Nausea [Recovered/Resolved]
  - Sinusitis [Unknown]
  - Alopecia [Recovered/Resolved]
  - Hot flush [Recovered/Resolved]
  - Arthralgia [Unknown]
  - Multiple sclerosis relapse [Recovered/Resolved]
